FAERS Safety Report 7330326-3 (Version None)
Quarter: 2011Q1

REPORT INFORMATION
  Report Type: 
  Country: None (occurrence: None)
  Receive Date: 20110304
  Receipt Date: 20110221
  Transmission Date: 20110831
  Serious: Yes (Other)
  Sender: FDA-Public Use
  Company Number: US-PAR PHARMACEUTICAL, INC-2011SCPR002721

PATIENT
  Age: 43 Year
  Sex: Female

DRUGS (3)
  1. TEMOZOLOMIDE [Suspect]
     Indication: GLIOBLASTOMA MULTIFORME
     Dosage: EIGHT CYCLES OF 150 MG/M^2 FOR 5 DAYS OF A 28 DAY CYCLE
     Route: 048
  2. DEXAMETHASONE [Suspect]
     Indication: GLIOBLASTOMA MULTIFORME
     Dosage: 20 MG, DAILY
     Route: 065
  3. BEVACIZUMAB [Suspect]
     Indication: GLIOBLASTOMA MULTIFORME
     Dosage: 10 MG/KG, EVERY 2 WEEKS
     Route: 065

REACTIONS (5)
  - WOUND [None]
  - SKIN STRIAE [None]
  - SKIN ULCER [None]
  - CUSHINGOID [None]
  - MYOPATHY [None]
